FAERS Safety Report 5470520-X (Version None)
Quarter: 2007Q3

REPORT INFORMATION
  Report Type: 
  Country: None (occurrence: None)
  Receive Date: 20070927
  Receipt Date: 20070927
  Transmission Date: 20080115
  Serious: Yes (Other)
  Sender: FDA-Public Use
  Company Number: None

PATIENT
  Age: 64 Year
  Sex: Female
  Weight: 90.7194 kg

DRUGS (1)
  1. CHANTIX [Suspect]
     Indication: SMOKING CESSATION THERAPY
     Dosage: ONE DAILY FOR 3 DAYS PO TWO DAILY PO
     Route: 048

REACTIONS (5)
  - HEADACHE [None]
  - LETHARGY [None]
  - NIGHTMARE [None]
  - STUPOR [None]
  - THROAT IRRITATION [None]
